FAERS Safety Report 20258647 (Version 5)
Quarter: 2022Q1

REPORT INFORMATION
  Report Type: Report from Study
  Country: FR (occurrence: FR)
  Receive Date: 20211230
  Receipt Date: 20220203
  Transmission Date: 20220424
  Serious: Yes (Hospitalization, Other)
  Sender: FDA-Public Use
  Company Number: FR-BRISTOL-MYERS SQUIBB COMPANY-BMS-2021-140436

PATIENT
  Age: 74 Year
  Sex: Male

DRUGS (15)
  1. BEMPEGALDESLEUKIN [Suspect]
     Active Substance: BEMPEGALDESLEUKIN
     Indication: Malignant melanoma
     Dosage: 0.444 MILLIGRAM, Q3WK
     Route: 042
     Dates: start: 20211019
  2. NIVOLUMAB [Suspect]
     Active Substance: NIVOLUMAB
     Indication: Malignant melanoma
     Dosage: 360 MILLIGRAM, Q3WK
     Route: 042
     Dates: start: 20211019
  3. COVID-19 VACCINE [Concomitant]
     Indication: COVID-19 prophylaxis
     Dosage: UNK (3RD VACCINATION)
     Route: 065
     Dates: start: 20211208
  4. FLECAINIDE [Concomitant]
     Active Substance: FLECAINIDE
     Indication: Atrial fibrillation
     Dosage: 200 MILLIGRAM, QD
     Route: 048
     Dates: start: 20151208, end: 20211222
  5. FLECAINIDE [Concomitant]
     Active Substance: FLECAINIDE
     Dosage: UNK
     Route: 065
  6. WARFARIN SODIUM [Concomitant]
     Active Substance: WARFARIN SODIUM
     Indication: Atrial fibrillation
     Dosage: 7 MILLIGRAM, QD
     Route: 048
     Dates: start: 20151209
  7. GEMFIBROZIL [Concomitant]
     Active Substance: GEMFIBROZIL
     Indication: Hypercholesterolaemia
     Dosage: 900 MILLIGRAM, QD
     Route: 048
     Dates: start: 20151208
  8. ESOMEPRAZOLE [Concomitant]
     Active Substance: ESOMEPRAZOLE
     Indication: Helicobacter gastritis
     Dosage: 40 MILLIGRAM, QD
     Route: 048
     Dates: start: 20151209
  9. VALACYCLOVIR HYDROCHLORIDE [Concomitant]
     Active Substance: VALACYCLOVIR HYDROCHLORIDE
     Indication: Uveitis
     Dosage: 500 MILLIGRAM, QD
     Route: 048
     Dates: start: 19900906
  10. ASPIRIN [Concomitant]
     Active Substance: ASPIRIN
     Indication: Uveitis
     Dosage: 1 DROP, QD
     Route: 047
     Dates: start: 20181010
  11. CARBOXYMETHYLCELLULOSE SODIUM\GLYCERIN [Concomitant]
     Active Substance: CARBOXYMETHYLCELLULOSE SODIUM\GLYCERIN
     Indication: Uveitis
     Dosage: 1 DROP, PRN
     Route: 047
     Dates: start: 20181010
  12. RETINOL [Concomitant]
     Active Substance: RETINOL
     Indication: Uveitis
     Dosage: 1 DOSAGE FORM= 1 APPLICATION QD
     Route: 047
     Dates: start: 20181010
  13. ALFUZOSIN HYDROCHLORIDE [Concomitant]
     Active Substance: ALFUZOSIN HYDROCHLORIDE
     Indication: Benign prostatic hyperplasia
     Dosage: 10 MILLIGRAM, QD
     Route: 065
     Dates: start: 20190101
  14. ACETAMINOPHEN [Concomitant]
     Active Substance: ACETAMINOPHEN
     Indication: Influenza like illness
     Dosage: 1 GRAM, PRN
     Route: 065
     Dates: start: 20211109
  15. INFLUENZA VIRUS VACCINE [Concomitant]
     Active Substance: INFLUENZA VIRUS VACCINE
     Indication: Prophylaxis
     Dosage: ONE DOSE
     Route: 030
     Dates: start: 20211201, end: 20211201

REACTIONS (1)
  - Atrial fibrillation [Recovered/Resolved]

NARRATIVE: CASE EVENT DATE: 20211221
